FAERS Safety Report 6202146-4 (Version None)
Quarter: 2009Q2

REPORT INFORMATION
  Report Type: 
  Country: None (occurrence: None)
  Receive Date: 20090526
  Receipt Date: 20090520
  Transmission Date: 20091009
  Serious: Yes (Death)
  Sender: FDA-Public Use
  Company Number: DE-ELI_LILLY_AND_COMPANY-DE200904005983

PATIENT
  Sex: Male
  Weight: 97 kg

DRUGS (6)
  1. PEMETREXED [Suspect]
     Indication: NON-SMALL CELL LUNG CANCER
     Dosage: 500 MG/M2, UNK
     Dates: start: 20090220, end: 20090403
  2. AVASTIN [Concomitant]
     Dosage: 15 MG/KG, UNK
     Route: 042
     Dates: start: 20081229, end: 20090119
  3. CARBOPLATIN [Concomitant]
     Dosage: 200 MG/M2, UNK
  4. PACLITAXEL [Concomitant]
     Route: 042
     Dates: start: 20081229, end: 20090119
  5. RED BLOOD CELLS [Concomitant]
     Route: 042
     Dates: start: 20081230
  6. DEXAMETHASONE [Concomitant]
     Route: 042

REACTIONS (1)
  - MULTI-ORGAN FAILURE [None]
